FAERS Safety Report 16201970 (Version 1)
Quarter: 2019Q2

REPORT INFORMATION
  Report Type: Spontaneous
  Country: US (occurrence: US)
  Receive Date: 20190416
  Receipt Date: 20190416
  Transmission Date: 20190711
  Serious: Yes (Hospitalization)
  Sender: FDA-Public Use
  Company Number: US-SUN PHARMACEUTICAL INDUSTRIES LTD-2019R1-205416

PATIENT
  Age: 34 Year
  Sex: Female

DRUGS (2)
  1. ALCOHOL. [Concomitant]
     Active Substance: ALCOHOL
     Indication: PRODUCT USED FOR UNKNOWN INDICATION
     Dosage: UNK
     Route: 065
  2. VENLAFAXINE [Suspect]
     Active Substance: VENLAFAXINE HYDROCHLORIDE
     Indication: PRODUCT USED FOR UNKNOWN INDICATION
     Dosage: UNK
     Route: 065

REACTIONS (10)
  - Hallucination, visual [Unknown]
  - Serotonin syndrome [Unknown]
  - Hypoxia [Unknown]
  - Muscle rigidity [Unknown]
  - Clonus [Unknown]
  - Suicidal ideation [Unknown]
  - Intentional overdose [Unknown]
  - Tremor [Unknown]
  - Gait inability [Unknown]
  - Acute respiratory distress syndrome [Unknown]
